FAERS Safety Report 13843627 (Version 1)
Quarter: 2017Q3

REPORT INFORMATION
  Report Type: Spontaneous
  Country: CN (occurrence: CN)
  Receive Date: 20170808
  Receipt Date: 20170808
  Transmission Date: 20171127
  Serious: Yes (Hospitalization)
  Sender: FDA-Public Use
  Company Number: CN-PFIZER INC-2017340631

PATIENT
  Age: 76 Year
  Sex: Male
  Weight: 55 kg

DRUGS (1)
  1. CELEBREX [Suspect]
     Active Substance: CELECOXIB
     Indication: ARTHRALGIA
     Dosage: 0.2 G, 2X/DAY
     Route: 048
     Dates: start: 20170423, end: 20170520

REACTIONS (3)
  - Toxic epidermal necrolysis [Recovering/Resolving]
  - Lung infection [Recovering/Resolving]
  - Respiratory failure [Recovering/Resolving]

NARRATIVE: CASE EVENT DATE: 20170520
